FAERS Safety Report 4531221-5 (Version None)
Quarter: 2004Q4

REPORT INFORMATION
  Report Type: 
  Country: None (occurrence: None)
  Receive Date: 20041206
  Receipt Date: 20040907
  Transmission Date: 20050328
  Serious: No
  Sender: FDA-Public Use
  Company Number: US_0409105255

PATIENT
  Age: 49 Year
  Sex: Male

DRUGS (8)
  1. CYMBALTA [Suspect]
     Indication: FIBROMYALGIA
     Dosage: 60 MG/ 1 DAY
     Dates: start: 20040818, end: 20040801
  2. NEURONTIN [Concomitant]
  3. LABETALOL [Concomitant]
  4. MINOXIDIL [Concomitant]
  5. HYDROCHLOROTHIAZIDE [Concomitant]
  6. PARACETAMOL W/TRAMADOL [Concomitant]
  7. SERZONE [Concomitant]
  8. KLOR-CON [Concomitant]

REACTIONS (2)
  - BLOOD PRESSURE INCREASED [None]
  - DIZZINESS [None]
